FAERS Safety Report 14297725 (Version 1)
Quarter: 2017Q4

REPORT INFORMATION
  Report Type: Report from Study
  Country: US (occurrence: US)
  Receive Date: 20171218
  Receipt Date: 20171218
  Transmission Date: 20180321
  Serious: Yes (Hospitalization)
  Sender: FDA-Public Use
  Company Number: US-ELI_LILLY_AND_COMPANY-US201712003214

PATIENT
  Sex: Male

DRUGS (2)
  1. FORTEO [Suspect]
     Active Substance: TERIPARATIDE
     Dosage: 20 UG, UNKNOWN
     Route: 058
     Dates: start: 20171120
  2. FORTEO [Suspect]
     Active Substance: TERIPARATIDE
     Indication: OSTEOPOROSIS
     Dosage: 20 UG, UNKNOWN
     Route: 058
     Dates: start: 2014

REACTIONS (7)
  - Loss of consciousness [Recovering/Resolving]
  - Pneumonia aspiration [Recovering/Resolving]
  - Gastrooesophageal reflux disease [Recovering/Resolving]
  - Body temperature increased [Recovered/Resolved]
  - Infection [Recovered/Resolved]
  - Limb discomfort [Recovered/Resolved]
  - Abnormal dreams [Recovered/Resolved]
